FAERS Safety Report 9163944 (Version 1)
Quarter: 2013Q1

REPORT INFORMATION
  Report Type: Spontaneous
  Country: BR (occurrence: BR)
  Receive Date: 20130314
  Receipt Date: 20130314
  Transmission Date: 20140127
  Serious: Yes (Hospitalization)
  Sender: FDA-Public Use
  Company Number: PHHY2013BR010295

PATIENT
  Sex: Female

DRUGS (11)
  1. GALVUS [Suspect]
     Dosage: 1 DF, DAILY
     Route: 048
  2. DIOVAN [Suspect]
     Indication: HYPERTENSION
     Dosage: 1 DF, DAILY
     Route: 048
  3. CATAFLAM [Suspect]
  4. CALCIUM [Suspect]
     Dosage: 11.6 MG/G
  5. BENEFIBER [Suspect]
     Dosage: 3.5 G, UNK
  6. VENORUTON [Suspect]
     Dosage: 500 MG, UNK
  7. SELOZOK [Suspect]
     Dosage: 1 DF, DAILY
     Route: 048
  8. SPIRONOLACTONE [Suspect]
     Indication: HYPERTENSION
     Dosage: 1 DF, DAILY
     Route: 048
  9. PLASIL [Suspect]
     Indication: ABDOMINAL DISCOMFORT
     Dosage: 1 DF, DAILY
     Route: 048
  10. XARELTO [Suspect]
     Indication: ANTICOAGULANT THERAPY
     Dosage: 1 DF, DAILY
     Route: 048
  11. PRADAXA [Suspect]
     Indication: ANTICOAGULANT THERAPY
     Dosage: 1 DF, DAILY
     Route: 048
     Dates: start: 20130204

REACTIONS (6)
  - Diverticulitis [Recovering/Resolving]
  - Mouth haemorrhage [Recovered/Resolved]
  - Anaemia [Recovering/Resolving]
  - Coagulopathy [Unknown]
  - Weight decreased [Not Recovered/Not Resolved]
  - Vomiting [Recovered/Resolved]
